FAERS Safety Report 5446065-X (Version None)
Quarter: 2007Q3

REPORT INFORMATION
  Report Type: 
  Country: None (occurrence: None)
  Receive Date: 20070907
  Receipt Date: 20070905
  Transmission Date: 20080115
  Serious: Yes (Hospitalization)
  Sender: FDA-Public Use
  Company Number: GB-BRISTOL-MYERS SQUIBB COMPANY-13899133

PATIENT
  Age: 66 Year
  Sex: Male

DRUGS (6)
  1. VEPESID [Suspect]
     Indication: SMALL CELL LUNG CANCER STAGE UNSPECIFIED
  2. VEPESID [Suspect]
     Indication: SMALL CELL LUNG CANCER STAGE UNSPECIFIED
     Dosage: ON DAY 2 AND 3 OF 21DAY CYCLE
     Route: 048
  3. PARAPLATIN [Suspect]
     Indication: SMALL CELL LUNG CANCER STAGE UNSPECIFIED
     Dosage: AUC=5 ON DAY 1.
     Route: 042
  4. METOCLOPRAMIDE [Concomitant]
     Indication: VOMITING
  5. DEXAMETHASONE 0.5MG TAB [Concomitant]
     Dosage: ON DAY 1 OF THE CYCLE
     Route: 042
  6. DEXAMETHASONE 0.5MG TAB [Concomitant]
     Dosage: ON DAYS 2, 3 AND 4 OF THE CYCLE
     Route: 048

REACTIONS (2)
  - SWELLING FACE [None]
  - SWOLLEN TONGUE [None]
